FAERS Safety Report 17694896 (Version 1)
Quarter: 2020Q2

REPORT INFORMATION
  Report Type: Report from Study
  Country: GB (occurrence: GB)
  Receive Date: 20200422
  Receipt Date: 20200422
  Transmission Date: 20200714
  Serious: Yes (Hospitalization, Other)
  Sender: FDA-Public Use
  Company Number: NVSC2020GB048883

PATIENT
  Sex: Female

DRUGS (4)
  1. HYRIMOZ [Suspect]
     Active Substance: ADALIMUMAB-ADAZ
     Indication: COLITIS ULCERATIVE
     Dosage: 160 MG, OTHER (LOADING DOSE WEEK 0)
     Route: 058
     Dates: start: 20200130
  2. HYRIMOZ [Suspect]
     Active Substance: ADALIMUMAB-ADAZ
     Dosage: 80 MG, OTHER (WEEK 2)
     Route: 058
  3. HYRIMOZ [Suspect]
     Active Substance: ADALIMUMAB-ADAZ
     Dosage: 40 MG, Q2W
     Route: 058
     Dates: end: 20200227
  4. HYRIMOZ [Suspect]
     Active Substance: ADALIMUMAB-ADAZ
     Dosage: 40 MG FORTNIGHTLY
     Route: 058
     Dates: start: 20200312

REACTIONS (16)
  - Gastrointestinal viral infection [Unknown]
  - Fatigue [Unknown]
  - Headache [Unknown]
  - Chills [Unknown]
  - Malaise [Unknown]
  - Pain [Unknown]
  - Injection site mass [Unknown]
  - Haematochezia [Unknown]
  - Body temperature abnormal [Unknown]
  - Injection site pain [Unknown]
  - Injection site erythema [Unknown]
  - Diarrhoea [Unknown]
  - Oropharyngeal pain [Unknown]
  - Frequent bowel movements [Recovering/Resolving]
  - Mucous stools [Unknown]
  - Injection site pruritus [Recovered/Resolved]
